FAERS Safety Report 24575170 (Version 1)
Quarter: 2024Q4

REPORT INFORMATION
  Report Type: Spontaneous
  Country: FR (occurrence: FR)
  Receive Date: 20241104
  Receipt Date: 20241104
  Transmission Date: 20250115
  Serious: Yes (Death)
  Sender: ORGANON
  Company Number: None

PATIENT
  Age: 87 Year
  Sex: Male
  Weight: 62 kg

DRUGS (9)
  1. MONTELUKAST SODIUM [Interacting]
     Active Substance: MONTELUKAST SODIUM
     Dosage: 10 MILLIGRAM, QD
     Route: 048
     Dates: end: 20240916
  2. KARDEGIC [Interacting]
     Active Substance: ASPIRIN DL-LYSINE
     Indication: Ischaemic stroke
     Dosage: 1 DOSAGE FORM, QD (POWDER FOR ORAL SOLUTION IN SACHET)
     Route: 048
     Dates: end: 20240916
  3. MIANSERIN HYDROCHLORIDE [Concomitant]
     Active Substance: MIANSERIN HYDROCHLORIDE
     Dosage: 30 MILLIGRAM, QD
     Route: 048
     Dates: end: 20240916
  4. LANSOPRAZOLE [Concomitant]
     Active Substance: LANSOPRAZOLE
     Dosage: 15 MILLIGRAM, QD
     Route: 048
     Dates: end: 20240916
  5. LEVODOPA [Concomitant]
     Active Substance: LEVODOPA
     Dosage: 375 MILLIGRAM, QD
     Route: 048
     Dates: end: 20240916
  6. BENSERAZIDE HYDROCHLORIDE [Concomitant]
     Active Substance: BENSERAZIDE HYDROCHLORIDE
     Dosage: 375 MILLIGRAM, QD
     Route: 048
     Dates: end: 20240916
  7. OXAZEPAM [Concomitant]
     Active Substance: OXAZEPAM
     Dosage: 10 MILLIGRAM, QD
     Route: 048
     Dates: end: 20240916
  8. DOXAZOSIN MESYLATE [Concomitant]
     Active Substance: DOXAZOSIN MESYLATE
     Dosage: 4 MILLIGRAM, QD
     Route: 048
     Dates: end: 20240916
  9. EZETIMIBE [Concomitant]
     Active Substance: EZETIMIBE
     Dosage: 10 MILLIGRAM, QD
     Route: 048
     Dates: end: 20240916

REACTIONS (2)
  - Cerebral haematoma [Fatal]
  - Drug interaction [Fatal]

NARRATIVE: CASE EVENT DATE: 20240916
